FAERS Safety Report 4994883-4 (Version None)
Quarter: 2006Q2

REPORT INFORMATION
  Report Type: 
  Country: None (occurrence: None)
  Receive Date: 20060503
  Receipt Date: 20060419
  Transmission Date: 20061013
  Serious: Yes (Other)
  Sender: FDA-Public Use
  Company Number: US200604003211

PATIENT
  Age: 50 Year
  Sex: Male

DRUGS (5)
  1. ALIMTA [Suspect]
     Indication: NON-SMALL CELL LUNG CANCER
  2. GEMZAR [Suspect]
     Indication: NON-SMALL CELL LUNG CANCER
  3. CYANOCOBALAMIN [Concomitant]
  4. FOLIC ACID [Concomitant]
  5. DECADRON SRC [Concomitant]

REACTIONS (3)
  - DIALYSIS [None]
  - HAEMOLYTIC URAEMIC SYNDROME [None]
  - THROMBOCYTHAEMIA [None]
